FAERS Safety Report 16459212 (Version 1)
Quarter: 2019Q2

REPORT INFORMATION
  Report Type: Spontaneous
  Country: TT (occurrence: TT)
  Receive Date: 20190620
  Receipt Date: 20190620
  Transmission Date: 20190711
  Serious: Yes (Hospitalization, Other)
  Sender: FDA-Public Use
  Company Number: TT-009507513-1906TTO006569

PATIENT
  Sex: Female

DRUGS (1)
  1. INVANZ [Suspect]
     Active Substance: ERTAPENEM SODIUM
     Dosage: ^TESTER DOSE^
     Dates: start: 201905

REACTIONS (4)
  - Shock [Recovered/Resolved]
  - Syncope [Recovered/Resolved]
  - Laryngospasm [Recovered/Resolved]
  - Dyspnoea [Recovered/Resolved]

NARRATIVE: CASE EVENT DATE: 201905
